FAERS Safety Report 9946641 (Version 1)
Quarter: 2014Q1

REPORT INFORMATION
  Report Type: Report from Study
  Country: US (occurrence: US)
  Receive Date: 20140303
  Receipt Date: 20140303
  Transmission Date: 20141002
  Serious: No
  Sender: FDA-Public Use
  Company Number: US-ABBVIE-13P-163-1065343-00

PATIENT
  Age: 55 Year
  Sex: Male

DRUGS (5)
  1. HUMIRA [Suspect]
     Indication: CROHN^S DISEASE
     Route: 058
     Dates: start: 20130227, end: 20130227
  2. HUMIRA [Suspect]
     Route: 058
     Dates: start: 20130313, end: 20130313
  3. HUMIRA [Suspect]
     Route: 058
  4. UNKNOWN MEDICATION [Concomitant]
     Indication: ANTIBIOTIC PROPHYLAXIS
  5. NEXIUM [Concomitant]
     Indication: DYSPEPSIA
     Dosage: DAILY

REACTIONS (1)
  - Headache [Not Recovered/Not Resolved]
